FAERS Safety Report 10216389 (Version 1)
Quarter: 2014Q2

REPORT INFORMATION
  Report Type: Spontaneous
  Country: US (occurrence: None)
  Receive Date: 20140602
  Receipt Date: 20140602
  Transmission Date: 20141212
  Serious: Yes (Hospitalization)
  Sender: FDA-Public Use
  Company Number: US-001036

PATIENT
  Sex: Male

DRUGS (2)
  1. GATTEX [Suspect]
     Indication: SHORT-BOWEL SYNDROME
     Dosage: Q, STREN/VOLUM: 0.28  ML/FREQ: ONCE A DAY SUBCUTANEOUS
     Route: 058
     Dates: start: 201307
  2. SOLUTIONS FOR PARENTERAL NUTRITION [Concomitant]

REACTIONS (3)
  - Septic shock [None]
  - Renal failure [None]
  - Acidosis [None]
